FAERS Safety Report 8163242-8 (Version None)
Quarter: 2012Q1

REPORT INFORMATION
  Report Type: 
  Country: None (occurrence: None)
  Receive Date: 20120224
  Receipt Date: 20110429
  Transmission Date: 20120608
  Serious: No
  Sender: FDA-Public Use
  Company Number: US-PFIZER INC-K201100523

PATIENT
  Age: 64 Year
  Sex: Female
  Weight: 61.224 kg

DRUGS (2)
  1. FLECTOR [Suspect]
     Indication: NEURALGIA
     Dosage: 1 PATCH, QD
     Route: 061
     Dates: start: 20110401
  2. AMBIEN CR [Concomitant]
     Dosage: AMBIEN CR QHS FOR INSOMNIA - ONGOING

REACTIONS (4)
  - ACCIDENTAL EXPOSURE [None]
  - GASTROOESOPHAGEAL REFLUX DISEASE [None]
  - DYSPHAGIA [None]
  - ANXIETY [None]
